FAERS Safety Report 8215247-6 (Version None)
Quarter: 2012Q1

REPORT INFORMATION
  Report Type: 
  Country: None (occurrence: None)
  Receive Date: 20120316
  Receipt Date: 20120306
  Transmission Date: 20120608
  Serious: Yes (Other)
  Sender: FDA-Public Use
  Company Number: IT-ELI_LILLY_AND_COMPANY-IT201203001426

PATIENT
  Age: 66 Year
  Sex: Male

DRUGS (1)
  1. FORTEO [Suspect]

REACTIONS (1)
  - CARDIAC OPERATION [None]
